FAERS Safety Report 6391822-9 (Version None)
Quarter: 2009Q4

REPORT INFORMATION
  Report Type: 
  Country: None (occurrence: None)
  Receive Date: 20091007
  Receipt Date: 20090928
  Transmission Date: 20100525
  Serious: Yes (Other)
  Sender: FDA-Public Use
  Company Number: US-BAYER-200928130NA

PATIENT
  Age: 24 Year
  Sex: Female
  Weight: 80 kg

DRUGS (1)
  1. MIRENA [Suspect]
     Indication: CONTRACEPTION
     Dosage: CONTINUOUS
     Route: 015
     Dates: start: 20081201, end: 20090708

REACTIONS (3)
  - DEVICE EXPULSION [None]
  - ECTOPIC PREGNANCY WITH INTRAUTERINE DEVICE [None]
  - FEELING ABNORMAL [None]
